FAERS Safety Report 9664642 (Version 3)
Quarter: 2013Q4

REPORT INFORMATION
  Report Type: Spontaneous
  Country: CN (occurrence: CN)
  Receive Date: 20131101
  Receipt Date: 20131120
  Transmission Date: 20140711
  Serious: Yes (Other)
  Sender: FDA-Public Use
  Company Number: CN-ROCHE-1298432

PATIENT
  Sex: Female

DRUGS (2)
  1. HERCEPTIN [Suspect]
     Indication: HER-2 POSITIVE BREAST CANCER
     Route: 041
  2. DOCETAXEL [Concomitant]
     Indication: HER-2 POSITIVE BREAST CANCER
     Route: 041

REACTIONS (1)
  - Hepatic cirrhosis [Unknown]
